FAERS Safety Report 6205982-3 (Version None)
Quarter: 2009Q2

REPORT INFORMATION
  Report Type: 
  Country: None (occurrence: None)
  Receive Date: 20090527
  Receipt Date: 20090527
  Transmission Date: 20091009
  Serious: Yes (Life-Threatening, Hospitalization)
  Sender: FDA-Public Use
  Company Number: None

PATIENT
  Age: 65 Year
  Sex: Male
  Weight: 107 kg

DRUGS (2)
  1. LEVOFLOXACIN [Suspect]
     Indication: URINARY TRACT INFECTION
     Dosage: 500 MG EVERY DAY IV
     Route: 042
     Dates: start: 20090408, end: 20090413
  2. AMIODARONE HCL [Suspect]
     Indication: ATRIAL FIBRILLATION
     Dates: start: 20090328, end: 20090417

REACTIONS (10)
  - BRADYCARDIA [None]
  - BUNDLE BRANCH BLOCK RIGHT [None]
  - CARDIO-RESPIRATORY ARREST [None]
  - ELECTROCARDIOGRAM QT PROLONGED [None]
  - ELECTROMECHANICAL DISSOCIATION [None]
  - MYOCARDIAL INFARCTION [None]
  - PALPITATIONS [None]
  - QRS AXIS ABNORMAL [None]
  - RESPIRATORY DISORDER [None]
  - SINUS TACHYCARDIA [None]
